FAERS Safety Report 7929820-3 (Version None)
Quarter: 2011Q4

REPORT INFORMATION
  Report Type: 
  Country: None (occurrence: None)
  Receive Date: 20111121
  Receipt Date: 20111114
  Transmission Date: 20120403
  Serious: Yes (Hospitalization)
  Sender: FDA-Public Use
  Company Number: US-BRISTOL-MYERS SQUIBB COMPANY-16213811

PATIENT
  Age: 48 Year
  Sex: Female
  Weight: 73 kg

DRUGS (9)
  1. OMEPRAZOLE [Concomitant]
  2. CELEXA [Concomitant]
  3. CALCIUM [Concomitant]
  4. FOLIC ACID [Concomitant]
  5. ORENCIA [Suspect]
     Indication: RHEUMATOID ARTHRITIS
     Dosage: LITTLE OVER A YEAR.
     Route: 042
     Dates: start: 20110101, end: 20111001
  6. METHOTREXATE [Suspect]
  7. MOTRIN [Concomitant]
  8. VITAMIN D [Concomitant]
  9. METOPROLOL TARTRATE [Concomitant]

REACTIONS (8)
  - FATIGUE [None]
  - NAUSEA [None]
  - RHINORRHOEA [None]
  - DYSPNOEA [None]
  - OESOPHAGITIS [None]
  - HEADACHE [None]
  - BACK PAIN [None]
  - CHEST PAIN [None]
